FAERS Safety Report 20245919 (Version 2)
Quarter: 2021Q4

REPORT INFORMATION
  Report Type: Report from Study
  Country: PT (occurrence: PT)
  Receive Date: 20211229
  Receipt Date: 20211231
  Transmission Date: 20220304
  Serious: Yes (Other)
  Sender: FDA-Public Use
  Company Number: PT-ABBVIE-21K-130-4214133-00

PATIENT
  Age: 81 Year
  Sex: Male

DRUGS (2)
  1. CARBIDOPA\LEVODOPA [Suspect]
     Active Substance: CARBIDOPA\LEVODOPA
     Indication: Parkinson^s disease
     Dosage: 20 MG PLUS 5 MG, MORNING 10 CC, MAINTENANCE 3.4CC/H, EXTRA 2CC
     Route: 050
     Dates: start: 20211202, end: 202112
  2. CARBIDOPA\LEVODOPA [Suspect]
     Active Substance: CARBIDOPA\LEVODOPA
     Dosage: 20 MG PLUS 5 MG, MORNING 12CC, MAINTENANCE 4,3CC/H, EXTRA 1,5 CC
     Route: 050
     Dates: start: 202112, end: 20211215

REACTIONS (3)
  - Blood pressure abnormal [Unknown]
  - Nervousness [Recovered/Resolved]
  - Anxiety [Recovered/Resolved]

NARRATIVE: CASE EVENT DATE: 20211226
